FAERS Safety Report 9311862 (Version 1)
Quarter: 2013Q2

REPORT INFORMATION
  Report Type: Spontaneous
  Country: CA (occurrence: CA)
  Receive Date: 20130528
  Receipt Date: 20130528
  Transmission Date: 20140414
  Serious: Yes (Other)
  Sender: FDA-Public Use
  Company Number: PHHY2013CA052418

PATIENT
  Sex: Male

DRUGS (4)
  1. MYFORTIC [Suspect]
     Dosage: UNK UKN, UNK
  2. HYDROXYCHLOROQUINE [Suspect]
     Dosage: UNK UKN, UNK
  3. METHOTREXATE [Suspect]
     Dosage: UNK UKN, UNK
  4. ENBREL [Suspect]
     Dosage: UNK UKN, UNK
     Route: 058

REACTIONS (1)
  - Basal cell carcinoma [Unknown]
